FAERS Safety Report 13289813 (Version 1)
Quarter: 2017Q1

REPORT INFORMATION
  Report Type: Spontaneous
  Country: AU (occurrence: AU)
  Receive Date: 20170303
  Receipt Date: 20170303
  Transmission Date: 20170428
  Serious: Yes (Hospitalization, Other)
  Sender: FDA-Public Use
  Company Number: AU-SUN PHARMACEUTICAL INDUSTRIES LTD-2015R1-108023

PATIENT
  Age: 53 Year
  Sex: Female
  Weight: 129 kg

DRUGS (40)
  1. DOCETAXEL. [Suspect]
     Active Substance: DOCETAXEL
     Indication: INVASIVE DUCTAL BREAST CARCINOMA
     Dosage: 184 MG EVERY 3 WEEKS
     Route: 042
     Dates: start: 20120605, end: 20120605
  2. DOCETAXEL. [Suspect]
     Active Substance: DOCETAXEL
     Dosage: 184 MG EVERY 3 WEEKS
     Route: 042
     Dates: start: 20120717, end: 20120717
  3. DEXAMETHASONE. [Concomitant]
     Active Substance: DEXAMETHASONE
     Dosage: 8 MG EVERY 3 WEEKS
     Route: 042
     Dates: start: 20120626, end: 20120626
  4. CYCLOPHOSPHAMIDE. [Concomitant]
     Active Substance: CYCLOPHOSPHAMIDE
     Indication: PRODUCT USED FOR UNKNOWN INDICATION
     Dosage: 1480 MG EVERY 3 WEEKS
     Route: 042
     Dates: start: 20120605, end: 20120605
  5. ONDANSETRON [Concomitant]
     Active Substance: ONDANSETRON
     Dosage: 8 MG, BID
     Route: 048
     Dates: start: 20120717, end: 20120718
  6. THYROXIN [Concomitant]
     Active Substance: LEVOTHYROXINE
     Indication: HYPOTHYROIDISM
     Dosage: 100 ?G, DAILY
     Route: 065
  7. DOCETAXEL. [Suspect]
     Active Substance: DOCETAXEL
     Dosage: 184 MG EVERY 3 WEEKS
     Route: 042
     Dates: start: 20120807, end: 20120807
  8. DEXAMETHASONE. [Concomitant]
     Active Substance: DEXAMETHASONE
     Dosage: 8 MG, BID
     Route: 048
     Dates: start: 20120717, end: 20120718
  9. ONDANSETRON [Concomitant]
     Active Substance: ONDANSETRON
     Dosage: 8 MG, BID
     Route: 048
     Dates: start: 20120807, end: 20120808
  10. PEGFILGRASTIM [Concomitant]
     Active Substance: PEGFILGRASTIM
     Dosage: 6 MG, QD
     Dates: start: 20120717, end: 20120717
  11. DOCETAXEL. [Suspect]
     Active Substance: DOCETAXEL
     Dosage: 184 MG EVERY 3 WEEKS
     Route: 042
     Dates: start: 20120626, end: 20120626
  12. DEXAMETHASONE. [Concomitant]
     Active Substance: DEXAMETHASONE
     Indication: PRODUCT USED FOR UNKNOWN INDICATION
     Dosage: 8 MG, BID
     Route: 048
     Dates: start: 20120605, end: 20120606
  13. DEXAMETHASONE. [Concomitant]
     Active Substance: DEXAMETHASONE
     Dosage: 8 MG, BID
     Route: 048
     Dates: start: 20120806, end: 20120806
  14. DEXAMETHASONE. [Concomitant]
     Active Substance: DEXAMETHASONE
     Indication: PRODUCT USED FOR UNKNOWN INDICATION
     Dosage: 8 MG EVERY 3 WEEKS
     Route: 042
     Dates: start: 20120605, end: 20120605
  15. GRANISETRON [Concomitant]
     Active Substance: GRANISETRON
     Dosage: 3 MG EVERY 3 WEEKS
     Route: 042
     Dates: start: 20120717, end: 20120717
  16. METOLOPRAMIDE [Concomitant]
     Indication: PRODUCT USED FOR UNKNOWN INDICATION
     Dosage: 10-20 MG 4-6 HOURLY AS NEEDED FOR 5 DAYS
     Route: 048
     Dates: start: 20120605, end: 20120609
  17. METOLOPRAMIDE [Concomitant]
     Dosage: 10-20 MG 4-6 HOURLY AS NEEDED FOR 5 DAYS
     Route: 048
     Dates: start: 20120626, end: 20120630
  18. PEGFILGRASTIM [Concomitant]
     Active Substance: PEGFILGRASTIM
     Indication: PRODUCT USED FOR UNKNOWN INDICATION
     Dosage: 6 MG, QD
     Dates: start: 20120626, end: 20120626
  19. PEGFILGRASTIM [Concomitant]
     Active Substance: PEGFILGRASTIM
     Dosage: 6 MG, QD
     Dates: start: 20120807, end: 20120807
  20. SODIUM CHLORIDE. [Concomitant]
     Active Substance: SODIUM CHLORIDE
     Dosage: 100 ML EVERY 3 WEEKS
     Route: 042
     Dates: start: 20120626, end: 20120626
  21. CYCLOPHOSPHAMIDE. [Concomitant]
     Active Substance: CYCLOPHOSPHAMIDE
     Dosage: 1480 MG EVERY 3 WEEKS
     Route: 042
     Dates: start: 20120807, end: 20120807
  22. DEXAMETHASONE. [Concomitant]
     Active Substance: DEXAMETHASONE
     Dosage: 8 MG, BID
     Route: 048
     Dates: start: 20120626, end: 20120627
  23. GRANISETRON [Concomitant]
     Active Substance: GRANISETRON
     Dosage: 3 MG EVERY 3 WEEKS
     Route: 042
     Dates: start: 20120807, end: 20120807
  24. METOLOPRAMIDE [Concomitant]
     Dosage: 10-20 MG 4-6 HOURLY AS NEEDED FOR 5 DAYS
     Route: 048
     Dates: start: 20120717, end: 20120721
  25. METOLOPRAMIDE [Concomitant]
     Dosage: 10-20 MG 4-6 HOURLY AS NEEDED FOR 5 DAYS
     Route: 048
     Dates: start: 20120807, end: 20120811
  26. ONDANSETRON [Concomitant]
     Active Substance: ONDANSETRON
     Dosage: 8 MG, BID
     Route: 048
     Dates: start: 20120626, end: 20120627
  27. SODIUM CHLORIDE. [Concomitant]
     Active Substance: SODIUM CHLORIDE
     Dosage: 100 ML EVERY 3 WEEKS
     Route: 042
     Dates: start: 20120807, end: 20120807
  28. CYCLOPHOSPHAMIDE. [Concomitant]
     Active Substance: CYCLOPHOSPHAMIDE
     Dosage: 1480 MG EVERY 3 WEEKS
     Route: 042
     Dates: start: 20120717, end: 20120717
  29. DEXAMETHASONE. [Concomitant]
     Active Substance: DEXAMETHASONE
     Dosage: 8 MG, BID
     Route: 048
     Dates: start: 20120807, end: 20120808
  30. DEXAMETHASONE. [Concomitant]
     Active Substance: DEXAMETHASONE
     Dosage: 8 MG, BID
     Route: 048
     Dates: start: 20120625, end: 20120625
  31. DEXAMETHASONE. [Concomitant]
     Active Substance: DEXAMETHASONE
     Dosage: 8 MG, BID
     Route: 048
     Dates: start: 20120716, end: 20120716
  32. DEXAMETHASONE. [Concomitant]
     Active Substance: DEXAMETHASONE
     Dosage: 8 MG EVERY 3 WEEKS
     Route: 042
     Dates: start: 20120807, end: 20120807
  33. ONDANSETRON [Concomitant]
     Active Substance: ONDANSETRON
     Indication: PRODUCT USED FOR UNKNOWN INDICATION
     Dosage: 8 MG, BID
     Route: 048
     Dates: start: 20120605, end: 20120606
  34. SODIUM CHLORIDE. [Concomitant]
     Active Substance: SODIUM CHLORIDE
     Indication: PRODUCT USED FOR UNKNOWN INDICATION
     Dosage: 100 ML EVERY 3 WEEKS
     Route: 042
     Dates: start: 20120605, end: 20120605
  35. SODIUM CHLORIDE. [Concomitant]
     Active Substance: SODIUM CHLORIDE
     Dosage: 100 ML EVERY 3 WEEKS
     Route: 042
     Dates: start: 20120717, end: 20120717
  36. CARBOPLATIN. [Suspect]
     Active Substance: CARBOPLATIN
     Indication: INVASIVE DUCTAL BREAST CARCINOMA
     Dosage: UNK
     Route: 065
  37. DEXAMETHASONE. [Concomitant]
     Active Substance: DEXAMETHASONE
     Dosage: 8 MG EVERY 3 WEEKS
     Route: 042
     Dates: start: 20120717, end: 20120717
  38. GRANISETRON [Concomitant]
     Active Substance: GRANISETRON
     Indication: PRODUCT USED FOR UNKNOWN INDICATION
     Dosage: 3 MG EVERY 3 WEEKS
     Route: 042
     Dates: start: 20120605, end: 20120605
  39. CYCLOPHOSPHAMIDE. [Concomitant]
     Active Substance: CYCLOPHOSPHAMIDE
     Dosage: 1480 MG EVERY 3 WEEKS
     Route: 042
     Dates: start: 20120626, end: 20120626
  40. GRANISETRON [Concomitant]
     Active Substance: GRANISETRON
     Dosage: 3 MG EVERY 3 WEEKS
     Route: 042
     Dates: start: 20120626, end: 20120626

REACTIONS (2)
  - Neuropathy peripheral [Recovering/Resolving]
  - Vitamin B12 deficiency [Recovering/Resolving]

NARRATIVE: CASE EVENT DATE: 20120825
